FAERS Safety Report 9095884 (Version 2)
Quarter: 2013Q2

REPORT INFORMATION
  Report Type: Report from Study
  Country: FR (occurrence: FR)
  Receive Date: 20130219
  Receipt Date: 20130503
  Transmission Date: 20140414
  Serious: Yes (Death, Life-Threatening, Hospitalization)
  Sender: FDA-Public Use
  Company Number: FR-BAXTER-2013BAX005556

PATIENT
  Age: 73 Year
  Sex: Male
  Weight: 71 kg

DRUGS (20)
  1. ENDOXAN 100 MG, POUDRE POUR SOLUTION INJECTABLE [Suspect]
     Indication: B-CELL LYMPHOMA
     Route: 042
     Dates: start: 20120229
  2. ENDOXAN 100 MG, POUDRE POUR SOLUTION INJECTABLE [Suspect]
     Route: 042
     Dates: start: 20120627
  3. DOXORUBICIN [Suspect]
     Indication: B-CELL LYMPHOMA
     Route: 042
     Dates: start: 20120229
  4. DOXORUBICIN [Suspect]
     Route: 042
     Dates: start: 20120627
  5. PREDNISONE [Suspect]
     Indication: B-CELL LYMPHOMA
     Route: 048
     Dates: start: 20120228
  6. PREDNISONE [Suspect]
     Route: 065
     Dates: start: 20120630
  7. VINCRISTINE [Suspect]
     Indication: B-CELL LYMPHOMA
     Route: 040
  8. VINCRISTINE [Suspect]
     Route: 040
     Dates: start: 20120627
  9. SIMVASTATINE [Concomitant]
     Indication: DYSLIPIDAEMIA
     Route: 065
  10. GLIMEPIRIDE [Concomitant]
     Indication: DIABETES MELLITUS
     Route: 065
  11. CLOPIDOGREL BISULFATE [Concomitant]
     Indication: ARTERIOSCLEROSIS
     Route: 065
  12. COOLMETEC [Concomitant]
     Indication: HYPERTENSION
     Route: 065
  13. SPIRONOLACTONE [Concomitant]
     Indication: HYPERTENSION
     Route: 065
  14. LERCANIDIPINE [Concomitant]
     Indication: HYPERTENSION
     Route: 065
  15. MOXONIDINE [Concomitant]
     Indication: HYPERTENSION
     Route: 065
  16. NEBIVOLOL [Concomitant]
     Indication: HYPERTENSION
     Route: 065
  17. PANTOPRAZOLE [Concomitant]
     Indication: PROPHYLAXIS AGAINST GASTROINTESTINAL ULCER
     Route: 065
  18. VALACICLOVIR [Concomitant]
     Indication: PREMEDICATION
     Route: 065
     Dates: start: 20120227
  19. AMOXICILLIN/CLAVULANATE POTASSIUM [Concomitant]
     Indication: INFECTION
     Route: 065
     Dates: start: 201206, end: 201206
  20. CIPROFLOXACIN [Concomitant]
     Indication: INFECTION
     Route: 065
     Dates: start: 201206, end: 201206

REACTIONS (2)
  - Pneumonia fungal [Fatal]
  - Sepsis [Not Recovered/Not Resolved]
